FAERS Safety Report 13831840 (Version 1)
Quarter: 2017Q3

REPORT INFORMATION
  Report Type: Spontaneous
  Country: US (occurrence: US)
  Receive Date: 20170803
  Receipt Date: 20170803
  Transmission Date: 20171127
  Serious: No
  Sender: FDA-Public Use
  Company Number: None

PATIENT
  Age: 55 Year
  Sex: Female

DRUGS (11)
  1. NORCO [Concomitant]
     Active Substance: ACETAMINOPHEN\HYDROCODONE BITARTRATE
  2. PANTOPRAZOLE [Concomitant]
     Active Substance: PANTOPRAZOLE
  3. RIZATRIPTAN. [Concomitant]
     Active Substance: RIZATRIPTAN
  4. INDERAL LA [Concomitant]
     Active Substance: PROPRANOLOL HYDROCHLORIDE
  5. LIBRAX [Concomitant]
     Active Substance: CHLORDIAZEPOXIDE HYDROCHLORIDE\CLIDINIUM BROMIDE
  6. BIOTIN [Concomitant]
     Active Substance: BIOTIN
  7. ATIVAN [Concomitant]
     Active Substance: LORAZEPAM
  8. HYDROXYZINE POW HCL [Concomitant]
  9. VITAMIN B12 [Concomitant]
     Active Substance: CYANOCOBALAMIN
  10. MULTIVITAMIN [Concomitant]
     Active Substance: VITAMINS
  11. OCALIVA [Suspect]
     Active Substance: OBETICHOLIC ACID
     Indication: BILIARY CIRRHOSIS PRIMARY
     Route: 048
     Dates: start: 20170418

REACTIONS (2)
  - Arthralgia [None]
  - Abdominal distension [None]

NARRATIVE: CASE EVENT DATE: 201707
